FAERS Safety Report 12298758 (Version 1)
Quarter: 2016Q2

REPORT INFORMATION
  Report Type: Spontaneous
  Country: US (occurrence: US)
  Receive Date: 20160425
  Receipt Date: 20160425
  Transmission Date: 20160815
  Serious: No
  Sender: FDA-Public Use
  Company Number: US-VELOXIS PHARMACEUTICALS-1050941

PATIENT
  Age: 56 Year
  Sex: Male
  Weight: 48.64 kg

DRUGS (2)
  1. ENVARSUS XR [Suspect]
     Active Substance: TACROLIMUS
     Indication: RENAL TRANSPLANT
     Route: 048
     Dates: start: 20160101
  2. ENVARSUS XR [Suspect]
     Active Substance: TACROLIMUS
     Route: 048
     Dates: start: 20160101

REACTIONS (1)
  - Lower limb fracture [Unknown]

NARRATIVE: CASE EVENT DATE: 20160403
